FAERS Safety Report 13082533 (Version 2)
Quarter: 2017Q1

REPORT INFORMATION
  Report Type: Report from Study
  Country: US (occurrence: US)
  Receive Date: 20170103
  Receipt Date: 20170119
  Transmission Date: 20170428
  Serious: No
  Sender: FDA-Public Use
  Company Number: US-ASTRAZENECA-2016SF31718

PATIENT
  Sex: Male

DRUGS (9)
  1. DIVALPROEX [Concomitant]
     Active Substance: DIVALPROEX SODIUM
     Dosage: 500 MG IN THE MORNING AND 1500 MG IN THE EVENING
     Route: 048
     Dates: start: 2011
  2. AMLODIPINE [Concomitant]
     Active Substance: AMLODIPINE BESYLATE
     Indication: BLOOD CHOLESTEROL INCREASED
     Route: 048
     Dates: start: 2016
  3. ATORVASTATIN [Concomitant]
     Active Substance: ATORVASTATIN
     Indication: HYPERTENSION
     Route: 048
     Dates: start: 2016
  4. CLONIDINE. [Concomitant]
     Active Substance: CLONIDINE
     Route: 048
     Dates: start: 2016
  5. BUSPIRONE [Concomitant]
     Active Substance: BUSPIRONE HYDROCHLORIDE
     Route: 048
     Dates: start: 2015
  6. TUDORZA PRESSAIR [Suspect]
     Active Substance: ACLIDINIUM BROMIDE
     Route: 055
  7. BEVESPI AEROSPHERE [Suspect]
     Active Substance: FORMOTEROL FUMARATE\GLYCOPYRROLATE
     Indication: CHRONIC OBSTRUCTIVE PULMONARY DISEASE
     Dosage: 9/4.8 MCG, TWO PUFFS ONCE A DAY
     Route: 055
     Dates: start: 20161107, end: 20161205
  8. BUPROPION. [Concomitant]
     Active Substance: BUPROPION
     Route: 048
     Dates: start: 2015
  9. LITHIUM CARBONATE. [Concomitant]
     Active Substance: LITHIUM CARBONATE
     Dosage: 300 MG IN THE MORNING AND 600 MG IN THE EVENING.
     Route: 048
     Dates: start: 2011

REACTIONS (5)
  - Off label use [Unknown]
  - Dyspnoea [Recovering/Resolving]
  - Inappropriate schedule of drug administration [Unknown]
  - Vision blurred [Recovering/Resolving]
  - Micturition disorder [Recovering/Resolving]

NARRATIVE: CASE EVENT DATE: 20161107
